FAERS Safety Report 4301987-8 (Version None)
Quarter: 2004Q1

REPORT INFORMATION
  Report Type: 
  Country: None (occurrence: None)
  Receive Date: 20040220
  Receipt Date: 20040213
  Transmission Date: 20041129
  Serious: Yes (Hospitalization)
  Sender: FDA-Public Use
  Company Number: PERI00204000450

PATIENT
  Age: 82 Year
  Sex: Male

DRUGS (1)
  1. COVERSYL (PERINDOPRIL) [Suspect]
     Indication: ILL-DEFINED DISORDER
     Dosage: DAILY PO
     Route: 048
     Dates: start: 20031125, end: 20031212

REACTIONS (6)
  - CYTOLYTIC HEPATITIS [None]
  - FACE OEDEMA [None]
  - LYMPHADENOPATHY [None]
  - RASH MACULO-PAPULAR [None]
  - SKIN DESQUAMATION [None]
  - SKIN REACTION [None]
